FAERS Safety Report 22322466 (Version 4)
Quarter: 2023Q2

REPORT INFORMATION
  Report Type: Report from Study
  Country: DE (occurrence: DE)
  Receive Date: 20230516
  Receipt Date: 20230525
  Transmission Date: 20230721
  Serious: Yes (Hospitalization)
  Sender: FDA-Public Use
  Company Number: DE-ABBVIE-4762139

PATIENT
  Sex: Male

DRUGS (3)
  1. CARBIDOPA\LEVODOPA [Suspect]
     Active Substance: CARBIDOPA\LEVODOPA
     Indication: Parkinson^s disease
     Dosage: MD 5.0ML; CRD: 3.0ML/H; CRN 1.7ML /H; ED-DAY: 1.5ML; ED-NIGHT: 1.0ML?LAST ADMIN DATE- 2023
     Route: 050
     Dates: start: 20230427
  2. CARBIDOPA\LEVODOPA [Suspect]
     Active Substance: CARBIDOPA\LEVODOPA
     Dosage: MD:5ML CRD:3.0 ML/H EDD:1,5 ML CRN:1,7 ML/H EDN:1,0ML, LAST ADMIN DATE- 04-2023
     Route: 050
     Dates: start: 20230424
  3. CARBIDOPA\LEVODOPA [Suspect]
     Active Substance: CARBIDOPA\LEVODOPA
     Dosage: MD: 5.0ML; CRD: 3.7ML/H; CRN: 1.7ML /H; ED(DAY): 1.5ML; ED(NIGHT): 1.0ML
     Route: 050
     Dates: start: 202305

REACTIONS (7)
  - Pulmonary oedema [Recovered/Resolved]
  - Device use issue [Not Recovered/Not Resolved]
  - Therapeutic product effect incomplete [Not Recovered/Not Resolved]
  - Mobility decreased [Not Recovered/Not Resolved]
  - Device kink [Not Recovered/Not Resolved]
  - Enteral nutrition [Not Recovered/Not Resolved]
  - Device dislocation [Not Recovered/Not Resolved]

NARRATIVE: CASE EVENT DATE: 20230101
